FAERS Safety Report 14789004 (Version 1)
Quarter: 2018Q2

REPORT INFORMATION
  Report Type: Spontaneous
  Country: NG (occurrence: NG)
  Receive Date: 20180423
  Receipt Date: 20180423
  Transmission Date: 20180711
  Serious: Yes (Other)
  Sender: FDA-Public Use
  Company Number: NG-BAYER-2018-077211

PATIENT
  Age: 68 Year
  Sex: Male

DRUGS (2)
  1. ULTRAVIST [Suspect]
     Active Substance: IOPROMIDE
     Indication: MESENTERIC VENOUS OCCLUSION
     Dosage: 75 ML, ONCE
     Route: 042
  2. ULTRAVIST [Suspect]
     Active Substance: IOPROMIDE
     Indication: COMPUTERISED TOMOGRAM ABDOMEN

REACTIONS (2)
  - Hypothermia [None]
  - Blood pressure increased [None]

NARRATIVE: CASE EVENT DATE: 20170228
